FAERS Safety Report 18086695 (Version 1)
Quarter: 2020Q3

REPORT INFORMATION
  Report Type: Spontaneous
  Country: US (occurrence: US)
  Receive Date: 20200728
  Receipt Date: 20200728
  Transmission Date: 20201103
  Serious: No
  Sender: FDA-Public Use
  Company Number: None

PATIENT
  Age: 58 Year
  Sex: Female
  Weight: 60.3 kg

DRUGS (6)
  1. XYREM [Suspect]
     Active Substance: SODIUM OXYBATE
     Indication: NARCOLEPSY
     Dosage: ?          QUANTITY:3 GRAMS;OTHER FREQUENCY:BEDTIME+4HR LATER;?
     Route: 048
     Dates: start: 20120317, end: 20200728
  2. NATURES BOUNTY CALCIUM 1200 MG PLUD 25 MCG VITAMIN D3 [Concomitant]
  3. RESTASIS [Concomitant]
     Active Substance: CYCLOSPORINE
  4. ALBUTEROL INHALER [Concomitant]
     Active Substance: ALBUTEROL
  5. NATURES BOUNTY FISH OIL 1200 MG WITH 360 MG OF OMEGA?3 [Concomitant]
  6. GENTEAL TEARS (MILD) [Concomitant]
     Active Substance: DEXTRAN 70\HYPROMELLOSE 2910 (4000 MPA.S)

REACTIONS (2)
  - Tardive dyskinesia [None]
  - Therapy cessation [None]

NARRATIVE: CASE EVENT DATE: 20200728
